FAERS Safety Report 4467975-6 (Version None)
Quarter: 2004Q4

REPORT INFORMATION
  Report Type: 
  Country: None (occurrence: None)
  Receive Date: 20041001
  Receipt Date: 20040920
  Transmission Date: 20050328
  Serious: Yes (Hospitalization)
  Sender: FDA-Public Use
  Company Number: 2004CG01859

PATIENT
  Age: 56 Year
  Sex: Male

DRUGS (1)
  1. XYLOCAINE [Suspect]
     Indication: LOCAL ANAESTHESIA
     Dates: start: 20040818, end: 20040818

REACTIONS (3)
  - COUGH [None]
  - FOREIGN BODY TRAUMA [None]
  - TRACHEAL DISORDER [None]
